FAERS Safety Report 20853674 (Version 1)
Quarter: 2022Q2

REPORT INFORMATION
  Report Type: Spontaneous
  Country: AU (occurrence: AU)
  Receive Date: 20220520
  Receipt Date: 20220520
  Transmission Date: 20220721
  Serious: Yes (Other)
  Sender: FDA-Public Use
  Company Number: AU-GRIFOLS-BIG0018852

PATIENT
  Age: 74 Year
  Sex: Female
  Weight: 73 kg

DRUGS (2)
  1. FLEBOGAMMA DIF [Suspect]
     Active Substance: HUMAN IMMUNOGLOBULIN G
     Indication: Myasthenia gravis
     Dosage: 20 GRAM, TOTAL
     Route: 042
     Dates: start: 20220513, end: 20220513
  2. PYRIDOSTIGMINE [Concomitant]
     Active Substance: PYRIDOSTIGMINE
     Dosage: 30 MILLIGRAM
     Dates: start: 20220503, end: 20220513

REACTIONS (6)
  - Chest pain [Recovered/Resolved]
  - Neutropenia [Recovered/Resolved]
  - Thrombocytopenia [Recovered/Resolved]
  - Leukopenia [Recovered/Resolved]
  - Lymphopenia [Recovered/Resolved]
  - Monocyte count decreased [Recovered/Resolved]

NARRATIVE: CASE EVENT DATE: 20220513
